FAERS Safety Report 19507081 (Version 1)
Quarter: 2021Q3

REPORT INFORMATION
  Report Type: Spontaneous
  Country: IT (occurrence: IT)
  Receive Date: 20210708
  Receipt Date: 20210708
  Transmission Date: 20211014
  Serious: Yes (Hospitalization)
  Sender: FDA-Public Use
  Company Number: IT-MYLANLABS-2021M1039420

PATIENT
  Age: 5 Decade
  Sex: Male
  Weight: 92.3 kg

DRUGS (5)
  1. FENOFIBRATE. [Concomitant]
     Active Substance: FENOFIBRATE
     Indication: BLOOD TRIGLYCERIDES INCREASED
     Dosage: 48 MILLIGRAM, QD
     Route: 048
  2. ZIDOVUDINE. [Suspect]
     Active Substance: ZIDOVUDINE
     Indication: HIV INFECTION
     Dosage: 300 MILLIGRAM, BID
     Route: 065
  3. LAMIVUDINE. [Suspect]
     Active Substance: LAMIVUDINE
     Indication: HIV INFECTION
     Dosage: 150 MILLIGRAM, BID
     Route: 065
  4. LOPINAVIR/RITONAVIR [Suspect]
     Active Substance: LOPINAVIR\RITONAVIR
     Indication: HIV INFECTION
     Dosage: UNK DOSAGE FORM, BID
     Route: 065
     Dates: end: 2002
  5. NEVIRAPINE. [Concomitant]
     Active Substance: NEVIRAPINE
     Indication: BLOOD TRIGLYCERIDES INCREASED
     Dosage: UNK
     Route: 065

REACTIONS (9)
  - Coronary artery stenosis [Recovered/Resolved]
  - Dyslipidaemia [Unknown]
  - Cardiac failure [Recovering/Resolving]
  - Atrioventricular block complete [Recovered/Resolved]
  - Mitral valve incompetence [Recovering/Resolving]
  - Arteriosclerosis coronary artery [Recovered/Resolved]
  - Cardiac failure chronic [Recovered/Resolved]
  - Pleural effusion [Recovering/Resolving]
  - Pulmonary arterial pressure increased [Recovering/Resolving]

NARRATIVE: CASE EVENT DATE: 2002
